FAERS Safety Report 16781157 (Version 3)
Quarter: 2021Q4

REPORT INFORMATION
  Report Type: Spontaneous
  Country: US (occurrence: US)
  Receive Date: 20190906
  Receipt Date: 20211111
  Transmission Date: 20220303
  Serious: Yes (Other)
  Sender: FDA-Public Use
  Company Number: US-SA-2019SA245815

PATIENT
  Age: 59 Year
  Sex: Male

DRUGS (12)
  1. DUPIXENT [Suspect]
     Active Substance: DUPILUMAB
     Indication: Dermatitis atopic
     Dosage: 300 MG, QOW
     Route: 058
     Dates: start: 20190820
  2. VITAMIN A + D [ERGOCALCIFEROL;RETINOL] [Concomitant]
  3. ZIRGAN [Concomitant]
     Active Substance: GANCICLOVIR
  4. OFLOXACIN [Concomitant]
     Active Substance: OFLOXACIN
  5. LOTEPREDNOL ETABONATE [Concomitant]
     Active Substance: LOTEPREDNOL ETABONATE
  6. VALACYCLOVIR [Concomitant]
     Active Substance: VALACYCLOVIR HYDROCHLORIDE
  7. MUPIROCIN [Concomitant]
     Active Substance: MUPIROCIN
  8. TOBRAMYCIN AND DEXAMETHASONE [Concomitant]
     Active Substance: DEXAMETHASONE\TOBRAMYCIN
  9. PREDNISONE [Concomitant]
     Active Substance: PREDNISONE
  10. FENOFIBRIC ACID [Concomitant]
     Active Substance: FENOFIBRIC ACID
  11. ATENOLOL [Concomitant]
     Active Substance: ATENOLOL
  12. DESOXIMETASONE [Concomitant]
     Active Substance: DESOXIMETASONE

REACTIONS (4)
  - Cerebrovascular accident [Not Recovered/Not Resolved]
  - Pruritus [Unknown]
  - Dry skin [Unknown]
  - Inflammation [Recovering/Resolving]

NARRATIVE: CASE EVENT DATE: 20190801
